FAERS Safety Report 6611995-X (Version None)
Quarter: 2010Q1

REPORT INFORMATION
  Report Type: 
  Country: None (occurrence: None)
  Receive Date: 20100303
  Receipt Date: 20100222
  Transmission Date: 20100710
  Serious: Yes (Disabling)
  Sender: FDA-Public Use
  Company Number: GXKR2010NL02191

PATIENT
  Age: 71 Year
  Sex: Male

DRUGS (2)
  1. CIPROFLOXACIN (NGX) [Suspect]
     Indication: BACTERIAL INFECTION
     Dosage: 400 MG, BID
     Route: 042
  2. CLINDAMYCIN [Concomitant]
     Dosage: 600 MG, TID

REACTIONS (8)
  - BURNING SENSATION [None]
  - DEBRIDEMENT [None]
  - ERYTHEMA [None]
  - GANGRENE [None]
  - LEG AMPUTATION [None]
  - PRURITUS [None]
  - PURPURA [None]
  - VASCULITIS [None]
